FAERS Safety Report 8956463 (Version 1)
Quarter: 2012Q4

REPORT INFORMATION
  Report Type: 
  Country: CN (occurrence: CN)
  Receive Date: 20121210
  Receipt Date: 20121210
  Transmission Date: 20130627
  Serious: Yes (Other)
  Sender: FDA-Public Use
  Company Number: CN-ABBOTT-11P-035-0717196-00

PATIENT
  Age: 26 Year
  Sex: Male

DRUGS (5)
  1. DEPAKINE [Suspect]
     Indication: EPILEPSY
     Route: 048
     Dates: start: 2009, end: 2009
  2. DEPAKINE [Suspect]
     Route: 048
     Dates: start: 201101
  3. DEPAKINE [Suspect]
     Route: 048
     Dates: start: 201103
  4. DEPAKINE [Suspect]
     Route: 048
  5. CARBAMAZEPINE [Concomitant]
     Indication: PRODUCT USED FOR UNKNOWN INDICATION

REACTIONS (2)
  - Loss of consciousness [Unknown]
  - Epilepsy [Unknown]
